FAERS Safety Report 11273958 (Version 1)
Quarter: 2015Q3

REPORT INFORMATION
  Report Type: Spontaneous
  Country: US (occurrence: US)
  Receive Date: 20150715
  Receipt Date: 20150715
  Transmission Date: 20151125
  Serious: Yes (Hospitalization, Other)
  Sender: FDA-Public Use
  Company Number: US-DSJP-DSJ-2015-122171AA

PATIENT

DRUGS (18)
  1. CRESTOR [Suspect]
     Active Substance: ROSUVASTATIN CALCIUM
     Dosage: UNK, EVERY DAY
     Route: 065
  2. HUMALOG [Suspect]
     Active Substance: INSULIN LISPRO
     Dosage: UNK
     Route: 065
  3. DEPO-ESTRADIOL [Suspect]
     Active Substance: ESTRADIOL CYPIONATE
     Dosage: UNK, EVERY 2-3 WEEKS
     Route: 030
  4. VITAMIN D                          /00107901/ [Suspect]
     Active Substance: ERGOCALCIFEROL
     Dosage: UNK, 3 TIMES PER 1WK
     Route: 065
  5. LANTUS [Suspect]
     Active Substance: INSULIN GLARGINE
     Dosage: UNK, EVERY DAY
     Route: 065
  6. SINGULAIR [Suspect]
     Active Substance: MONTELUKAST SODIUM
     Dosage: UNK
     Route: 065
  7. PROTONIX [Suspect]
     Active Substance: PANTOPRAZOLE SODIUM
     Dosage: UNK, DAILY
  8. CYMBALTA [Suspect]
     Active Substance: DULOXETINE HYDROCHLORIDE
     Dosage: UNK, DAILY
     Route: 065
  9. VALIUM [Suspect]
     Active Substance: DIAZEPAM
     Dosage: UNK, TID PRN
     Route: 065
  10. CEVIMELINE HYDROCHLORIDE HYDRATE [Suspect]
     Active Substance: CEVIMELINE HYDROCHLORIDE
     Indication: PRODUCT USED FOR UNKNOWN INDICATION
     Dosage: UNK, TID
     Route: 065
  11. METOPROLOL [Suspect]
     Active Substance: METOPROLOL
     Dosage: UNK, BID
     Route: 065
  12. AMBIEN [Suspect]
     Active Substance: ZOLPIDEM TARTRATE
     Dosage: 1 AT BEDTIME
     Route: 065
  13. PHENERGAN [Suspect]
     Active Substance: PROMETHAZINE HYDROCHLORIDE
     Dosage: UNK, TID PRN
     Route: 042
  14. METHADONE [Suspect]
     Active Substance: METHADONE HYDROCHLORIDE
     Dosage: UNK
     Route: 037
  15. SOMA [Suspect]
     Active Substance: CARISOPRODOL
     Dosage: UNK, AS NEEDED
     Route: 065
  16. ALDACTONE [Suspect]
     Active Substance: SPIRONOLACTONE
     Dosage: UNK, BID
     Route: 065
  17. BACLOFEN INTRATHECAL [Suspect]
     Active Substance: BACLOFEN
     Indication: MUSCLE SPASTICITY
     Dosage: UNK
     Route: 037
  18. BUTULBITAL [Suspect]
     Active Substance: BUTALBITAL
     Dosage: UNK
     Route: 065

REACTIONS (4)
  - White blood cell count increased [Unknown]
  - Impaired healing [Unknown]
  - Medical device site erosion [Unknown]
  - Blood pressure decreased [Unknown]

NARRATIVE: CASE EVENT DATE: 20091109
